FAERS Safety Report 8522298-0 (Version None)
Quarter: 2012Q3

REPORT INFORMATION
  Report Type: 
  Country: None (occurrence: None)
  Receive Date: 20120719
  Receipt Date: 20120710
  Transmission Date: 20120928
  Serious: Yes (Hospitalization)
  Sender: FDA-Public Use
  Company Number: US-ACTELION-A-US2011-44874

PATIENT

DRUGS (5)
  1. ASPIRIN [Concomitant]
  2. TRACLEER [Suspect]
     Indication: PULMONARY ARTERIAL HYPERTENSION
     Dosage: UNK MG, UNK
     Route: 048
  3. TADALAFIL [Concomitant]
  4. LASIX [Concomitant]
  5. REMODULIN [Concomitant]

REACTIONS (3)
  - STAPHYLOCOCCAL INFECTION [None]
  - DYSPNOEA [None]
  - DEVICE RELATED INFECTION [None]
